FAERS Safety Report 5852393-6 (Version None)
Quarter: 2008Q3

REPORT INFORMATION
  Report Type: 
  Country: None (occurrence: None)
  Receive Date: 20080821
  Receipt Date: 20080814
  Transmission Date: 20090109
  Serious: Yes (Hospitalization)
  Sender: FDA-Public Use
  Company Number: PHHO2006FR03730

PATIENT
  Sex: Female

DRUGS (13)
  1. LETROZOLE [Suspect]
     Indication: BREAST CANCER METASTATIC
     Dosage: 2.5 MG, QD
     Route: 048
     Dates: start: 20050124, end: 20051208
  2. CRESTOR [Concomitant]
  3. SMECTA [Concomitant]
  4. LASIX [Concomitant]
  5. TENORMIN [Concomitant]
  6. DILTIAZEM HCL [Concomitant]
  7. LIPANOR [Concomitant]
  8. ADANCOR [Concomitant]
  9. PROPOXYPHENE HCL AND ACETAMINOPHEN [Concomitant]
  10. ALDOMET [Concomitant]
  11. AMARYL [Concomitant]
  12. ASPEGIC 325 [Concomitant]
  13. SOLUPRED [Concomitant]
     Dosage: 70MG/DAY

REACTIONS (10)
  - CROHN'S DISEASE [None]
  - DIARRHOEA [None]
  - ENTERITIS [None]
  - ERYTHEMA [None]
  - GASTROINTESTINAL INFLAMMATION [None]
  - GRANULOMA [None]
  - INTESTINAL ULCER [None]
  - OEDEMA [None]
  - PAIN [None]
  - PROCTALGIA [None]
